FAERS Safety Report 25975999 (Version 3)
Quarter: 2025Q4

REPORT INFORMATION
  Report Type: Spontaneous
  Country: US (occurrence: US)
  Receive Date: 20251029
  Receipt Date: 20251216
  Transmission Date: 20260117
  Serious: No
  Sender: IPSEN BIOPHARMACEUTICALS, INC.
  Company Number: US-IPSEN Group, Research and Development-2025-26356

PATIENT
  Sex: Female

DRUGS (20)
  1. IQIRVO [Suspect]
     Active Substance: ELAFIBRANOR
     Indication: Liver disorder
     Route: 048
  2. IQIRVO [Suspect]
     Active Substance: ELAFIBRANOR
     Indication: Primary biliary cholangitis
  3. ACETAMINOPHEN [Concomitant]
     Active Substance: ACETAMINOPHEN
  4. ASPIRIN [Concomitant]
     Active Substance: ASPIRIN
  5. EVEROLIMUS [Concomitant]
     Active Substance: EVEROLIMUS
  6. LEVOTHYROXINE SODIUM [Concomitant]
     Active Substance: LEVOTHYROXINE SODIUM
  7. NYSTATIN [Concomitant]
     Active Substance: NYSTATIN
  8. OCALIVA [Concomitant]
     Active Substance: OBETICHOLIC ACID
  9. CLOPIDOGREL [Concomitant]
     Active Substance: CLOPIDOGREL BISULFATE
  10. METFORMIN HYDROCHLORIDE [Concomitant]
     Active Substance: METFORMIN HYDROCHLORIDE
  11. OMEPRAZOLE [Concomitant]
     Active Substance: OMEPRAZOLE
  12. PREDNISONE [Concomitant]
     Active Substance: PREDNISONE
  13. VITAMINS [Concomitant]
     Active Substance: VITAMINS
  14. VITAMINS [Concomitant]
     Active Substance: VITAMINS
  15. PROGRAF [Concomitant]
     Active Substance: TACROLIMUS
  16. ROSUVASTATIN [Concomitant]
     Active Substance: ROSUVASTATIN
  17. CALCIUM [Concomitant]
     Active Substance: CALCIUM
  18. URSODIOL [Concomitant]
     Active Substance: URSODIOL
  19. TACROLIMUS [Concomitant]
     Active Substance: TACROLIMUS
  20. TYLENOL [Concomitant]
     Active Substance: ACETAMINOPHEN

REACTIONS (3)
  - Abdominal pain upper [Unknown]
  - Rash [Unknown]
  - Pruritus [Unknown]
